FAERS Safety Report 11055414 (Version 1)
Quarter: 2015Q2

REPORT INFORMATION
  Report Type: Report from Study
  Country: DE (occurrence: DE)
  Receive Date: 20150422
  Receipt Date: 20150422
  Transmission Date: 20150821
  Serious: Yes (Death, Hospitalization)
  Sender: FDA-Public Use
  Company Number: DE-SA-2014SA101520

PATIENT
  Sex: Male

DRUGS (1)
  1. AUBAGIO [Suspect]
     Active Substance: TERIFLUNOMIDE
     Indication: MULTIPLE SCLEROSIS
     Route: 048
     Dates: start: 20140416

REACTIONS (8)
  - Chromaturia [Unknown]
  - Head injury [Unknown]
  - Diarrhoea [Unknown]
  - Sepsis [Fatal]
  - Hypophagia [Unknown]
  - Unresponsive to stimuli [Unknown]
  - Respiratory disorder [Unknown]
  - Upper limb fracture [Unknown]

NARRATIVE: CASE EVENT DATE: 201406
